FAERS Safety Report 21395882 (Version 2)
Quarter: 2022Q4

REPORT INFORMATION
  Report Type: Report from Study
  Country: IT (occurrence: IT)
  Receive Date: 20220930
  Receipt Date: 20221202
  Transmission Date: 20230112
  Serious: Yes (Death, Hospitalization, Other)
  Sender: FDA-Public Use
  Company Number: IT-NOVARTISPH-NVSC2022IT219835

PATIENT
  Age: 51 Year
  Sex: Female

DRUGS (1)
  1. PIQRAY [Suspect]
     Active Substance: ALPELISIB
     Indication: Adenocarcinoma of colon
     Dosage: 300 MG, QD
     Route: 048
     Dates: start: 20220218, end: 20220422

REACTIONS (4)
  - Death [Fatal]
  - General physical health deterioration [Unknown]
  - Intestinal obstruction [Unknown]
  - Malignant neoplasm progression [Unknown]

NARRATIVE: CASE EVENT DATE: 20220422
